FAERS Safety Report 5501124-8 (Version None)
Quarter: 2007Q4

REPORT INFORMATION
  Report Type: 
  Country: None (occurrence: None)
  Receive Date: 20071026
  Receipt Date: 20071016
  Transmission Date: 20080405
  Serious: Yes (Hospitalization)
  Sender: FDA-Public Use
  Company Number: US021473

PATIENT
  Age: 30 Year
  Sex: Male
  Weight: 74.8435 kg

DRUGS (8)
  1. ACTIQ [Suspect]
     Indication: ABDOMINAL PAIN
     Dosage: 600 UG Q3HR BUCCAL
     Route: 002
     Dates: start: 20040101
  2. ACTIQ [Suspect]
     Indication: PROCTALGIA
     Dosage: 600 UG Q3HR BUCCAL
     Route: 002
     Dates: start: 20040101
  3. ADDERALL 10 [Suspect]
     Indication: DRUG WITHDRAWAL SYNDROME
     Dates: start: 20070201
  4. CYMBALTA [Suspect]
     Indication: DEPRESSION
     Dosage: 20 MG QD ORAL
     Route: 048
     Dates: start: 20040101
  5. FENTANYL [Concomitant]
  6. DEPAKOTE [Concomitant]
  7. GEODON [Concomitant]
  8. VALIUM [Concomitant]

REACTIONS (3)
  - CONVULSION [None]
  - DRUG DEPENDENCE [None]
  - DRUG WITHDRAWAL SYNDROME [None]
